FAERS Safety Report 18028790 (Version 2)
Quarter: 2020Q3

REPORT INFORMATION
  Report Type: Spontaneous
  Country: US (occurrence: US)
  Receive Date: 20200716
  Receipt Date: 20200908
  Transmission Date: 20201103
  Serious: Yes (Other)
  Sender: FDA-Public Use
  Company Number: US-ACCORD-175348

PATIENT
  Age: 65 Year
  Sex: Male

DRUGS (5)
  1. LAMOTRIGINE. [Interacting]
     Active Substance: LAMOTRIGINE
     Indication: SEIZURE
  2. VALPROIC ACID. [Interacting]
     Active Substance: VALPROIC ACID
     Indication: SEIZURE
  3. WARFARIN [Suspect]
     Active Substance: WARFARIN
     Indication: PRODUCT USED FOR UNKNOWN INDICATION
  4. LORAZEPAM. [Concomitant]
     Active Substance: LORAZEPAM
  5. SERTRALINE [Suspect]
     Active Substance: SERTRALINE HYDROCHLORIDE
     Indication: SEIZURE

REACTIONS (6)
  - Anticoagulation drug level above therapeutic [Recovered/Resolved]
  - Transaminases increased [Recovering/Resolving]
  - Delirium [Recovering/Resolving]
  - Mental status changes [Recovering/Resolving]
  - Drug interaction [Unknown]
  - Drug level increased [Recovering/Resolving]
